FAERS Safety Report 10086197 (Version 1)
Quarter: 2014Q2

REPORT INFORMATION
  Report Type: Spontaneous
  Country: US (occurrence: None)
  Receive Date: 20140417
  Receipt Date: 20140417
  Transmission Date: 20141212
  Serious: Yes (Other)
  Sender: FDA-Public Use
  Company Number: None

PATIENT
  Age: 41 Year
  Sex: Male
  Weight: 104 kg

DRUGS (7)
  1. GAMUNEX-C [Suspect]
     Indication: CHRONIC INFLAMMATORY DEMYELINATING POLYRADICULONEUROPATHY
     Dosage: 20 VIALS
     Route: 042
     Dates: start: 20140413
  2. GAMUNEX-C [Suspect]
  3. GABAPENTIN [Concomitant]
  4. BICILLIN [Concomitant]
  5. TRAZODONE [Concomitant]
  6. DILAUDID [Concomitant]
  7. ZOLOFT [Concomitant]

REACTIONS (6)
  - Urticaria [None]
  - Blood pressure increased [None]
  - Heart rate decreased [None]
  - Erythema [None]
  - Rash [None]
  - Rash [None]
